FAERS Safety Report 7999605-0 (Version None)
Quarter: 2011Q4

REPORT INFORMATION
  Report Type: 
  Country: None (occurrence: None)
  Receive Date: 20111221
  Receipt Date: 20111209
  Transmission Date: 20120403
  Serious: Yes (Hospitalization)
  Sender: FDA-Public Use
  Company Number: US-MERCK-1112KOR00018

PATIENT
  Age: 81 Year
  Sex: Male
  Weight: 58 kg

DRUGS (7)
  1. WARFARIN [Suspect]
     Route: 048
  2. ACETAMINOPHEN AND CODEINE [Concomitant]
     Route: 065
  3. LISINOPRIL [Concomitant]
     Route: 048
  4. ZOCOR [Suspect]
     Route: 048
     Dates: start: 20070101
  5. NORTRIPTYLINE [Concomitant]
     Route: 048
  6. GEMFIBROZIL [Suspect]
     Route: 048
     Dates: start: 20050101
  7. ASPIRIN [Concomitant]
     Route: 048

REACTIONS (6)
  - BLUE TOE SYNDROME [None]
  - RENAL FAILURE ACUTE [None]
  - DRUG INTERACTION [None]
  - TRANSAMINASES INCREASED [None]
  - RHABDOMYOLYSIS [None]
  - INTERNATIONAL NORMALISED RATIO INCREASED [None]
